FAERS Safety Report 24027071 (Version 1)
Quarter: 2024Q2

REPORT INFORMATION
  Report Type: Spontaneous
  Country: US (occurrence: US)
  Receive Date: 20240628
  Receipt Date: 20240628
  Transmission Date: 20240716
  Serious: No
  Sender: FDA-Public Use
  Company Number: US-ROCHE-10000006023

PATIENT
  Sex: Female

DRUGS (1)
  1. PHESGO [Suspect]
     Active Substance: HYALURONIDASE-ZZXF\PERTUZUMAB\TRASTUZUMAB
     Indication: HER2 positive breast cancer
     Dosage: 600MG PERTUZUMAB, 600MG TRASTUZUMAB, AND 20,000 UNITS HYALURONIDASE
     Route: 058

REACTIONS (3)
  - Mouth haemorrhage [Unknown]
  - Leukocytosis [Unknown]
  - Vaginal haemorrhage [Unknown]
